FAERS Safety Report 17384772 (Version 1)
Quarter: 2020Q1

REPORT INFORMATION
  Report Type: Spontaneous
  Country: US (occurrence: US)
  Receive Date: 20200206
  Receipt Date: 20200206
  Transmission Date: 20200409
  Serious: No
  Sender: FDA-Public Use
  Company Number: US-ABBVIE-19S-163-2701747-00

PATIENT

DRUGS (5)
  1. XELJANZ [Suspect]
     Active Substance: TOFACITINIB CITRATE
     Indication: COLITIS ULCERATIVE
     Route: 048
     Dates: start: 201810, end: 201901
  2. AMITRIPTYLINE [Concomitant]
     Active Substance: AMITRIPTYLINE
     Indication: IRRITABLE BOWEL SYNDROME
     Dosage: EVERY BED TIME(QHS)
  3. HYOSCYAMINE. [Concomitant]
     Active Substance: HYOSCYAMINE
     Indication: IRRITABLE BOWEL SYNDROME
     Dosage: QBH AS REQUIRED
  4. HUMIRA [Suspect]
     Active Substance: ADALIMUMAB
     Indication: PRODUCT USED FOR UNKNOWN INDICATION
     Route: 058
  5. ZOFRAN [Concomitant]
     Active Substance: ONDANSETRON HYDROCHLORIDE
     Indication: NAUSEA
     Dosage: AS REQUIRED

REACTIONS (6)
  - Drug hypersensitivity [Unknown]
  - Food allergy [Unknown]
  - Abdominal pain upper [Unknown]
  - Rash papular [Unknown]
  - Sinusitis [Recovered/Resolved]
  - Sleep disorder [Unknown]
